FAERS Safety Report 17416095 (Version 4)
Quarter: 2020Q1

REPORT INFORMATION
  Report Type: Report from Study
  Country: CA (occurrence: CA)
  Receive Date: 20200213
  Receipt Date: 20200331
  Transmission Date: 20200409
  Serious: Yes (Other)
  Sender: FDA-Public Use
  Company Number: CA-NALPROPION PHARMACEUTICALS INC.-2020-009415

PATIENT

DRUGS (5)
  1. CONTRAVE [Suspect]
     Active Substance: BUPROPION HYDROCHLORIDE\NALTREXONE HYDROCHLORIDE
     Dosage: 90MG/8MG, STARTED APPROXIMATELY 29/NOV/2019-05/DEC/2019, 2 TABS IN MORNING AND 1 TAB IN EVENING
     Route: 048
     Dates: start: 201911, end: 201912
  2. CBD OIL [Concomitant]
     Active Substance: CANNABIDIOL\HERBALS
     Indication: PAIN
     Dosage: UNK
     Route: 048
  3. CONTRAVE [Suspect]
     Active Substance: BUPROPION HYDROCHLORIDE\NALTREXONE HYDROCHLORIDE
     Indication: WEIGHT CONTROL
     Dosage: 90MG/8MG, STARTED APPROXIMATELY 15/NOV/2019 TILL 21/NOV/2019 (1 DOSAGE FORMS, 1 IN 1 D)
     Route: 048
     Dates: start: 201911, end: 201911
  4. CONTRAVE [Suspect]
     Active Substance: BUPROPION HYDROCHLORIDE\NALTREXONE HYDROCHLORIDE
     Dosage: 90MG/8MG, STARTED APPROXIMATELY 06/DEC/2019, 2 TABLETS IN THE MORNING AND 2 TABLETS IN THE EVENING
     Route: 048
     Dates: start: 201912, end: 20200225
  5. CONTRAVE [Suspect]
     Active Substance: BUPROPION HYDROCHLORIDE\NALTREXONE HYDROCHLORIDE
     Dosage: 90MG/8MG, STARTED APPROXIMATELY 22/NOV/2019 TILL APPROXIMATELY 28/NOV/2019(1 DOSAGE FORMS, 2 IN 1 D)
     Route: 048
     Dates: start: 201911, end: 201911

REACTIONS (8)
  - Nasopharyngitis [Unknown]
  - Treatment noncompliance [Unknown]
  - Blood pressure increased [Unknown]
  - Cataract operation [Unknown]
  - Inability to afford medication [Unknown]
  - Oropharyngeal pain [Unknown]
  - Hepatic enzyme increased [Unknown]
  - Intentional product use issue [Unknown]

NARRATIVE: CASE EVENT DATE: 2019
